FAERS Safety Report 11629466 (Version 1)
Quarter: 2015Q4

REPORT INFORMATION
  Report Type: Report from Study
  Country: CA (occurrence: CA)
  Receive Date: 20151014
  Receipt Date: 20151014
  Transmission Date: 20160304
  Serious: Yes (Other)
  Sender: FDA-Public Use
  Company Number: CA-ROCHE-1510112

PATIENT
  Age: 65 Year
  Sex: Female

DRUGS (4)
  1. AVASTIN [Suspect]
     Active Substance: BEVACIZUMAB
     Indication: COLORECTAL CANCER METASTATIC
     Dosage: ON CHEMO FOR 1 YEAR
     Route: 065
     Dates: start: 201309
  2. FOLINIC ACID [Suspect]
     Active Substance: LEUCOVORIN
     Indication: COLORECTAL CANCER METASTATIC
     Dosage: ON CHEMO FOR 1 YEAR
     Route: 065
     Dates: start: 201309
  3. FLUOROURACIL. [Suspect]
     Active Substance: FLUOROURACIL
     Indication: COLORECTAL CANCER METASTATIC
     Dosage: ON CHEMO FOR 1 YEAR
     Route: 065
     Dates: start: 201309
  4. IRINOTECAN [Suspect]
     Active Substance: IRINOTECAN
     Indication: COLORECTAL CANCER METASTATIC
     Dosage: ON CHEMO FOR 1 YEAR
     Route: 065
     Dates: start: 201309

REACTIONS (13)
  - Drug ineffective [Unknown]
  - Hyperhidrosis [Unknown]
  - Diarrhoea [Unknown]
  - Inflammation [Unknown]
  - Vaginal infection [Recovered/Resolved]
  - Arthropathy [Not Recovered/Not Resolved]
  - Feeling abnormal [Unknown]
  - Blood test abnormal [Unknown]
  - Blood glucose increased [Unknown]
  - Asthenia [Not Recovered/Not Resolved]
  - Urinary incontinence [Unknown]
  - Abdominal distension [Unknown]
  - Hunger [Unknown]
